FAERS Safety Report 10176713 (Version 1)
Quarter: 2014Q2

REPORT INFORMATION
  Report Type: Spontaneous
  Country: US (occurrence: None)
  Receive Date: 20140515
  Receipt Date: 20140515
  Transmission Date: 20141212
  Serious: No
  Sender: FDA-Public Use
  Company Number: None

PATIENT
  Age: 69 Year
  Sex: Male
  Weight: 120 kg

DRUGS (5)
  1. DELFLEX [Suspect]
     Indication: RENAL FAILURE CHRONIC
     Dosage: 17L OVERNIGHT CCPD
     Dates: start: 20140108, end: 20140123
  2. DELFLEX [Suspect]
     Indication: RENAL FAILURE CHRONIC
     Dosage: 17L OVERNIGHT CCPD
     Dates: start: 20140108, end: 20140123
  3. FESENIUS LIBERTY CYCLER [Concomitant]
  4. FESENIUS LIBERTY CYCLER SET [Concomitant]
  5. DELFLEX PERITONEAL DIALYSIS SOLUTION [Concomitant]

REACTIONS (2)
  - Peritoneal fluid analysis abnormal [None]
  - Pseudomonas test positive [None]
